FAERS Safety Report 8308122-X (Version None)
Quarter: 2012Q2

REPORT INFORMATION
  Report Type: 
  Country: None (occurrence: None)
  Receive Date: 20120424
  Receipt Date: 20120418
  Transmission Date: 20120825
  Serious: Yes (Hospitalization, Other)
  Sender: FDA-Public Use
  Company Number: AT-ROCHE-1039693

PATIENT
  Sex: Female
  Weight: 56 kg

DRUGS (2)
  1. XYLOCAINE [Concomitant]
     Dates: start: 20120215, end: 20120215
  2. VEMURAFENIB [Suspect]
     Indication: METASTATIC MALIGNANT MELANOMA
     Dosage: LAST DOSE PRIOR TO EVENT: 10/FEB/2012
     Route: 048
     Dates: start: 20120116, end: 20120211

REACTIONS (2)
  - DRUG RASH WITH EOSINOPHILIA AND SYSTEMIC SYMPTOMS [None]
  - KERATOACANTHOMA [None]
